FAERS Safety Report 4395768-7 (Version None)
Quarter: 2004Q3

REPORT INFORMATION
  Report Type: 
  Country: None (occurrence: None)
  Receive Date: 20040707
  Receipt Date: 20040628
  Transmission Date: 20050211
  Serious: Yes (Disabling)
  Sender: FDA-Public Use
  Company Number: 04H-008-0265046-00

PATIENT
  Age: 82 Year
  Sex: Male
  Weight: 70 kg

DRUGS (5)
  1. HEPARIN SODIUM [Suspect]
     Indication: ANTICOAGULANT THERAPY
     Dosage: 5000 UNIT, TWICE DAILY SEE IMAGE
  2. ENOXAPARIN SODIUM [Suspect]
     Indication: ANTICOAGULANT THERAPY
     Dosage: 60 MG, TWICE DAILY  SC DAY 8-11
     Route: 058
  3. BUPIVACAINE [Concomitant]
  4. FENTANYL [Concomitant]
  5. MORPHINE [Concomitant]

REACTIONS (11)
  - BACK PAIN [None]
  - EXTRADURAL HAEMATOMA [None]
  - GENERAL PHYSICAL CONDITION ABNORMAL [None]
  - PARALYSIS FLACCID [None]
  - PARAPLEGIA [None]
  - PHLEBOTHROMBOSIS [None]
  - PLEURITIC PAIN [None]
  - POST PROCEDURAL COMPLICATION [None]
  - PULMONARY EMBOLISM [None]
  - RESPIRATORY FAILURE [None]
  - SENSORY LOSS [None]
